FAERS Safety Report 5284565-6 (Version None)
Quarter: 2007Q2

REPORT INFORMATION
  Report Type: 
  Country: None (occurrence: None)
  Receive Date: 20070403
  Receipt Date: 20070330
  Transmission Date: 20071010
  Serious: Yes (Life-Threatening, Hospitalization)
  Sender: FDA-Public Use
  Company Number: DE-GLAXOSMITHKLINE-D0052216A

PATIENT
  Age: 38 Year
  Sex: Female
  Weight: 62 kg

DRUGS (3)
  1. IMIGRAN [Suspect]
     Indication: MIGRAINE
     Dosage: 1TAB SINGLE DOSE
     Route: 048
     Dates: start: 20070131
  2. ACETAMINOPHEN [Concomitant]
     Indication: MIGRAINE
     Route: 048
     Dates: start: 20070130, end: 20070131
  3. ASPIRIN [Concomitant]
     Indication: MIGRAINE
     Route: 065
     Dates: start: 20070130, end: 20070131

REACTIONS (10)
  - ANAPHYLACTIC SHOCK [None]
  - BLOOD PRESSURE DECREASED [None]
  - CHEST DISCOMFORT [None]
  - DEPRESSED LEVEL OF CONSCIOUSNESS [None]
  - DYSPNOEA [None]
  - IMMOBILE [None]
  - NAUSEA [None]
  - PERIPHERAL COLDNESS [None]
  - SWOLLEN TONGUE [None]
  - VOMITING [None]
